FAERS Safety Report 8003554-1 (Version None)
Quarter: 2011Q4

REPORT INFORMATION
  Report Type: 
  Country: None (occurrence: None)
  Receive Date: 20111222
  Receipt Date: 20111220
  Transmission Date: 20120403
  Serious: Yes (Other)
  Sender: FDA-Public Use
  Company Number: US-US-EMD SERONO, INC.-7102265

PATIENT
  Sex: Female
  Weight: 64 kg

DRUGS (11)
  1. OPANA ER [Concomitant]
     Indication: ARTHRALGIA
  2. KEPPRA [Concomitant]
     Indication: CONVULSION
     Dates: start: 20110101
  3. CYMBALTA [Concomitant]
     Indication: PAIN
  4. HYDROCODONE [Concomitant]
     Indication: ARTHRALGIA
  5. BYSTOLIC [Concomitant]
     Indication: HYPERTENSION
     Dates: start: 20110101
  6. REBIF [Suspect]
     Indication: MULTIPLE SCLEROSIS
     Route: 058
     Dates: start: 20050613
  7. HYDROCODONE [Concomitant]
     Indication: BACK PAIN
  8. TIZANIDINE HCL [Concomitant]
     Indication: MUSCLE RELAXANT THERAPY
     Dates: start: 20100101
  9. CORTICOSTEROIDS [Suspect]
     Indication: PRODUCT USED FOR UNKNOWN INDICATION
  10. CYMBALTA [Concomitant]
     Indication: DEPRESSION
     Dates: start: 20090101
  11. OPANA ER [Concomitant]
     Indication: BACK PAIN

REACTIONS (8)
  - OSTEONECROSIS [None]
  - INFLUENZA LIKE ILLNESS [None]
  - INJECTION SITE ERYTHEMA [None]
  - VISUAL IMPAIRMENT [None]
  - FALL [None]
  - INJECTION SITE PAIN [None]
  - GAIT DISTURBANCE [None]
  - INJECTION SITE HAEMATOMA [None]
